FAERS Safety Report 15821143 (Version 1)
Quarter: 2019Q1

REPORT INFORMATION
  Report Type: Spontaneous
  Country: DE (occurrence: DE)
  Receive Date: 20190114
  Receipt Date: 20190114
  Transmission Date: 20190417
  Serious: Yes (Other)
  Sender: FDA-Public Use
  Company Number: DE-ALLERGAN-1901594US

PATIENT
  Age: 34 Year
  Sex: Female

DRUGS (3)
  1. LEPONEX [Interacting]
     Active Substance: CLOZAPINE
     Dosage: 450 MG, QD
     Route: 048
  2. CITALOPRAM HYDROBROMIDE - BP [Suspect]
     Active Substance: CITALOPRAM HYDROBROMIDE
     Indication: PSYCHOTIC DISORDER
     Dosage: UNK, UNKNOWN
     Route: 065
  3. LEPONEX [Interacting]
     Active Substance: CLOZAPINE
     Indication: PSYCHOTIC DISORDER
     Dosage: UNK, UNKNOWN
     Route: 048
     Dates: start: 200203

REACTIONS (5)
  - Drug interaction [Recovering/Resolving]
  - Salivary hypersecretion [Not Recovered/Not Resolved]
  - Drug level increased [Unknown]
  - Product use in unapproved indication [Unknown]
  - Seizure [Recovered/Resolved]
